FAERS Safety Report 5648952-6 (Version None)
Quarter: 2008Q1

REPORT INFORMATION
  Report Type: 
  Country: None (occurrence: None)
  Receive Date: 20080304
  Receipt Date: 20080225
  Transmission Date: 20080703
  Serious: Yes (Other)
  Sender: FDA-Public Use
  Company Number: JP-AVENTIS-200713115JP

PATIENT
  Age: 66 Year
  Sex: Male

DRUGS (3)
  1. TAXOTERE [Suspect]
     Route: 041
     Dates: start: 20070101
  2. CISPLATIN [Concomitant]
     Dates: start: 20070801
  3. FLUOROURACIL [Concomitant]
     Dates: start: 20070101

REACTIONS (1)
  - INAPPROPRIATE ANTIDIURETIC HORMONE SECRETION [None]
